FAERS Safety Report 18860448 (Version 3)
Quarter: 2021Q3

REPORT INFORMATION
  Report Type: Report from Study
  Country: US (occurrence: US)
  Receive Date: 20210208
  Receipt Date: 20210920
  Transmission Date: 20211014
  Serious: Yes (Other)
  Sender: FDA-Public Use
  Company Number: US-TAKEDA-US202022121

PATIENT
  Sex: Female

DRUGS (2)
  1. HUMAN IMMUNOGLOBULIN; HYALURONIDASE [Suspect]
     Active Substance: HUMAN IMMUNOGLOBULIN G\HYALURONIDASE RECOMBINANT HUMAN
     Indication: IMMUNODEFICIENCY COMMON VARIABLE
     Dosage: UNK
     Route: 065
  2. HUMAN NORMAL IMMUNOGLOBULIN [Concomitant]
     Active Substance: HUMAN IMMUNOGLOBULIN G
     Indication: PRODUCT USED FOR UNKNOWN INDICATION
     Route: 065

REACTIONS (17)
  - Joint swelling [Unknown]
  - Asthma [Unknown]
  - Scar excision [Unknown]
  - Product administration error [Recovered/Resolved]
  - Sinusitis [Unknown]
  - Arthritis [Unknown]
  - Arthropathy [Unknown]
  - Arthralgia [Unknown]
  - Fatigue [Unknown]
  - Wrong technique in product usage process [Unknown]
  - Neuroprosthesis implantation [Unknown]
  - Pain [Unknown]
  - Gait disturbance [Unknown]
  - Knee operation [Unknown]
  - Procedural pain [Unknown]
  - Osteoarthritis [Unknown]
  - Inappropriate schedule of product administration [Unknown]
